FAERS Safety Report 4861057-7 (Version None)
Quarter: 2005Q4

REPORT INFORMATION
  Report Type: 
  Country: None (occurrence: None)
  Receive Date: 20051220
  Receipt Date: 20050805
  Transmission Date: 20060501
  Serious: Yes (Other)
  Sender: FDA-Public Use
  Company Number: US-GLAXOSMITHKLINE-A0569803A

PATIENT
  Age: 41 Year
  Sex: Male

DRUGS (4)
  1. PAXIL [Suspect]
     Route: 065
  2. ST. JOHNS WORT [Suspect]
     Indication: DRUG USE FOR UNKNOWN INDICATION
  3. KAVA KAVA [Suspect]
     Indication: DRUG USE FOR UNKNOWN INDICATION
  4. GINSENG [Suspect]
     Indication: DRUG USE FOR UNKNOWN INDICATION

REACTIONS (5)
  - AGGRESSION [None]
  - DRUG INTERACTION [None]
  - PHYSICAL ASSAULT [None]
  - SELF MUTILATION [None]
  - SUICIDE ATTEMPT [None]
